FAERS Safety Report 5410911-6 (Version None)
Quarter: 2007Q3

REPORT INFORMATION
  Report Type: 
  Country: None (occurrence: None)
  Receive Date: 20070809
  Receipt Date: 20070809
  Transmission Date: 20080115
  Serious: Yes (Death, Hospitalization)
  Sender: FDA-Public Use
  Company Number: None

PATIENT
  Sex: Female

DRUGS (6)
  1. REVLIMID [Suspect]
     Dosage: 5MG PO DAILY
     Route: 048
     Dates: start: 20070503, end: 20070516
  2. THALIDOMIDE [Suspect]
     Dosage: 100MG PO DAILY
     Route: 048
     Dates: start: 20050831, end: 20070502
  3. ZOMETA [Concomitant]
  4. GLUCOPHAGE [Concomitant]
  5. AVANDIA [Concomitant]
  6. TRIAMTERENE AND HYDROCHLOROTHIAZIDE [Concomitant]

REACTIONS (1)
  - ACUTE HEPATIC FAILURE [None]
